FAERS Safety Report 19089586 (Version 4)
Quarter: 2021Q4

REPORT INFORMATION
  Report Type: Report from Study
  Country: UG (occurrence: UG)
  Receive Date: 20210403
  Receipt Date: 20211230
  Transmission Date: 20220303
  Serious: Yes (Hospitalization, Other)
  Sender: FDA-Public Use
  Company Number: UG-CIPLA LTD.-2021UG02502

PATIENT

DRUGS (8)
  1. LOPINAVIR\RITONAVIR [Suspect]
     Active Substance: LOPINAVIR\RITONAVIR
     Indication: HIV infection
     Dosage: 80/20 MG, BID
     Route: 048
     Dates: start: 20171031, end: 201801
  2. LOPINAVIR\RITONAVIR [Suspect]
     Active Substance: LOPINAVIR\RITONAVIR
     Dosage: 120/30 MG, BID
     Route: 048
     Dates: start: 20180123, end: 20181002
  3. ABACAVIR\LAMIVUDINE [Suspect]
     Active Substance: ABACAVIR\LAMIVUDINE
     Indication: HIV infection
     Dosage: 60/30 MG, BID
     Route: 048
     Dates: start: 20171031, end: 201801
  4. ABACAVIR\LAMIVUDINE [Suspect]
     Active Substance: ABACAVIR\LAMIVUDINE
     Dosage: 90/45 MG, BID
     Route: 048
     Dates: start: 20180123, end: 20181002
  5. ERYTHROMYCIN [Concomitant]
     Active Substance: ERYTHROMYCIN
     Indication: Product used for unknown indication
     Dosage: 2.5 ML
     Route: 065
     Dates: start: 20171031, end: 20171105
  6. ACETAMINOPHEN [Concomitant]
     Active Substance: ACETAMINOPHEN
     Indication: Pyrexia
     Dosage: 2.5 ML, TID
     Route: 065
     Dates: start: 20171031, end: 20171102
  7. KEFLEX [Concomitant]
     Active Substance: CEPHALEXIN
     Indication: Upper respiratory tract infection
     Dosage: 2.5 ML, TID
     Route: 065
     Dates: start: 20171031, end: 20171104
  8. ZINC [Concomitant]
     Active Substance: ZINC
     Indication: Diarrhoea
     Dosage: 10 MG, DAILY
     Route: 065
     Dates: start: 20171031, end: 20171104

REACTIONS (5)
  - Malnutrition [Recovered/Resolved with Sequelae]
  - Upper respiratory tract infection [Not Recovered/Not Resolved]
  - Oral candidiasis [Recovered/Resolved]
  - Diarrhoea [Recovered/Resolved]
  - Cough [Recovered/Resolved]

NARRATIVE: CASE EVENT DATE: 20171105
